FAERS Safety Report 25474460 (Version 1)
Quarter: 2025Q2

REPORT INFORMATION
  Report Type: Report from Study
  Country: US (occurrence: US)
  Receive Date: 20250624
  Receipt Date: 20250624
  Transmission Date: 20250716
  Serious: Yes (Hospitalization)
  Sender: ABBVIE
  Company Number: US-ABBVIE-6335292

PATIENT
  Age: 72 Year
  Sex: Female

DRUGS (1)
  1. LINZESS [Suspect]
     Active Substance: LINACLOTIDE
     Indication: Product used for unknown indication
     Route: 048
     Dates: start: 20200101

REACTIONS (3)
  - Cerebrovascular accident [Unknown]
  - Dysarthria [Unknown]
  - Eye disorder [Unknown]

NARRATIVE: CASE EVENT DATE: 20250420
